FAERS Safety Report 8392629-3 (Version None)
Quarter: 2012Q1

REPORT INFORMATION
  Report Type: 
  Country: None (occurrence: None)
  Receive Date: 20120323
  Receipt Date: 20110803
  Transmission Date: 20120608
  Serious: Yes (Other)
  Sender: FDA-Public Use
  Company Number: 163-21880-11032351

PATIENT
  Age: 63 Year
  Sex: Female

DRUGS (3)
  1. VELCADE (BORTEZOMIB)(3.5 MILLIGRAM, INJECTION) [Concomitant]
  2. REVLIMID [Suspect]
     Indication: MULTIPLE MYELOMA
     Dosage: 25 MG, 1 IN 1 D, PO, 10 MG, DAILY X 21 DAYS, PO
     Route: 048
     Dates: start: 20101005
  3. REVLIMID [Suspect]
     Indication: MULTIPLE MYELOMA
     Dosage: 25 MG, 1 IN 1 D, PO, 10 MG, DAILY X 21 DAYS, PO
     Route: 048
     Dates: start: 20081101, end: 20100101

REACTIONS (3)
  - WHITE BLOOD CELL COUNT DECREASED [None]
  - DRUG INEFFECTIVE [None]
  - INSOMNIA [None]
